FAERS Safety Report 10014058 (Version 1)
Quarter: 2014Q1

REPORT INFORMATION
  Report Type: Spontaneous
  Country: US (occurrence: US)
  Receive Date: 20140317
  Receipt Date: 20140317
  Transmission Date: 20141002
  Serious: Yes (Hospitalization)
  Sender: FDA-Public Use
  Company Number: US-AMGEN-USASP2014017742

PATIENT
  Age: 57 Year
  Sex: Male
  Weight: 77.56 kg

DRUGS (27)
  1. NEULASTA [Suspect]
     Indication: PROPHYLAXIS
     Dosage: 0.2857 MG (6 MG,1 IN 21)
     Route: 058
     Dates: start: 20131126
  2. CUSTIRSEN [Suspect]
     Indication: LUNG NEOPLASM MALIGNANT
     Dosage: 91.4286 MG (640 MG,1 IN 1 WK)
     Route: 042
     Dates: start: 20131118
  3. DOCETAXEL [Suspect]
     Indication: LUNG NEOPLASM MALIGNANT
     Dosage: 3.571 MG/M2 (75 M /M2,1 IN 21 D)
     Route: 042
     Dates: start: 20131125
  4. AMLODIPINE [Concomitant]
     Indication: HYPERTENSION
     Dosage: 10 MG (10 MG, 1 IN 1 D)
     Route: 048
     Dates: start: 201307
  5. DOCUSATE [Concomitant]
     Indication: CONSTIPATION PROPHYLAXIS
     Dosage: 200 MG (100 MG, 2 IN 1 D)
     Route: 048
  6. PERCOCET                           /00867901/ [Concomitant]
     Indication: CHEST PAIN
     Dosage: 5 MG, AS NECESSARY
     Route: 048
  7. FAMOTIDINE [Concomitant]
     Indication: DYSPEPSIA
     Dosage: UNK UNK, AS NECESSARY
     Route: 048
  8. FAMOTIDINE [Concomitant]
     Indication: GASTROOESOPHAGEAL REFLUX DISEASE
  9. COMPAZINE                          /00013304/ [Concomitant]
     Indication: PROPHYLAXIS OF NAUSEA AND VOMITING
     Dosage: 10 MG, AS NECESSARY
     Route: 048
  10. ZOFRAN                             /00955301/ [Concomitant]
     Indication: PROPHYLAXIS OF NAUSEA AND VOMITING
     Dosage: 8 MG, AS NECESSARY
     Route: 048
     Dates: start: 20130807
  11. ZOFRAN                             /00955301/ [Concomitant]
     Dosage: 0. 381 MG (8 MG, 1 IN 21 D)
     Route: 042
     Dates: start: 20131125
  12. IBUPROFEN [Concomitant]
     Indication: PROPHYLAXIS
     Dosage: 400 MG, UNK
     Route: 048
     Dates: start: 20131118, end: 20131122
  13. DECADRON                           /00016001/ [Concomitant]
     Indication: PROPHYLAXIS
     Dosage: 20 MG, UNK
     Route: 042
     Dates: start: 20131125
  14. BENADRYL                           /00000402/ [Concomitant]
     Indication: PROPHYLAXIS
     Dosage: 1. 1905 MG (25 MG, 1 IN 21 D)
     Route: 042
     Dates: start: 20131125
  15. INFED [Concomitant]
     Indication: IRON DEFICIENCY ANAEMIA
     Dosage: 1500 MG, UNK
     Route: 042
     Dates: start: 20131220, end: 20131220
  16. TYLENOL                            /00020001/ [Concomitant]
     Indication: PROPHYLAXIS
     Dosage: 600 MG, UNK
     Route: 048
     Dates: start: 20131118, end: 20131119
  17. DIFLUCAN [Concomitant]
     Indication: CANDIDA INFECTION
     Dosage: 200 MG, UNK
     Route: 048
     Dates: start: 20131203, end: 20131203
  18. INFLUENZA VACCINE [Concomitant]
     Indication: PROPHYLAXIS
     Dosage: 0.5 ML, UNK
     Route: 042
     Dates: start: 20140131, end: 20140131
  19. MORPHINE [Concomitant]
     Indication: PAIN
     Dosage: 2 MG, UNK
     Route: 042
     Dates: start: 20140130, end: 20140130
  20. MORPHINE [Concomitant]
     Dosage: 4 MG, UNK
     Route: 042
     Dates: start: 20140130, end: 20140130
  21. TAMIFLU [Concomitant]
     Indication: INFLUENZA
     Dosage: 150 MG, QD
     Dates: start: 20140130, end: 20140131
  22. PIPERACILLIN [Concomitant]
     Indication: INFECTION PROPHYLAXIS
     Dosage: 13500 GRAM (3375 GRAM, 1 IN 6 HR)
     Route: 042
     Dates: start: 20140130, end: 20140131
  23. VANCOMYCIN [Concomitant]
     Indication: INFECTION PROPHYLAXIS
     Dosage: 1500 MG, UNK
     Route: 042
     Dates: start: 20140130, end: 20140130
  24. VANCOMYCIN [Concomitant]
     Dosage: 2500 MG (1250 MG, 1 IN 12 HR)
     Route: 042
     Dates: start: 20140131, end: 20140131
  25. AMBIEN [Concomitant]
     Indication: INSOMNIA
     Dosage: 5 MG, UNK
     Route: 048
     Dates: start: 20140130, end: 20140130
  26. OXYCODONE [Concomitant]
     Indication: PAIN
     Dosage: 5/325 MG (1 IN 4 HR)
     Route: 048
     Dates: start: 20140130, end: 20140130
  27. POTASSIUM CHLORIDE [Concomitant]
     Indication: HYPOKALAEMIA
     Dosage: 20 MEQ, AS NECESSARY
     Route: 042
     Dates: start: 20140131, end: 20140131

REACTIONS (3)
  - Influenza like illness [Recovered/Resolved]
  - Vomiting [Recovered/Resolved]
  - Diarrhoea [Recovered/Resolved]
